FAERS Safety Report 10347683 (Version 1)
Quarter: 2014Q3

REPORT INFORMATION
  Report Type: Spontaneous
  Country: US (occurrence: US)
  Receive Date: 20140729
  Receipt Date: 20140729
  Transmission Date: 20150326
  Serious: Yes (Disabling, Other)
  Sender: FDA-Public Use
  Company Number: US-ACTAVIS-2014-16111

PATIENT
  Sex: Female

DRUGS (4)
  1. ZOLPIDEM TARTRATE (WATSON LABORATORIES) [Suspect]
     Active Substance: ZOLPIDEM TARTRATE
     Indication: TARDIVE DYSKINESIA
     Dosage: 5 MG, BID
     Route: 065
  2. ZOLPIDEM TARTRATE (WATSON LABORATORIES) [Suspect]
     Active Substance: ZOLPIDEM TARTRATE
     Indication: OFF LABEL USE
  3. THIOTHIXENE (WATSON LABORATORIES) [Suspect]
     Active Substance: THIOTHIXENE
     Indication: SUICIDAL IDEATION
     Dosage: UNK
     Route: 065
  4. THIOTHIXENE (WATSON LABORATORIES) [Suspect]
     Active Substance: THIOTHIXENE
     Indication: DEPRESSION

REACTIONS (3)
  - Tardive dyskinesia [Recovering/Resolving]
  - Akathisia [Not Recovered/Not Resolved]
  - Off label use [Unknown]
